FAERS Safety Report 15538236 (Version 1)
Quarter: 2018Q4

REPORT INFORMATION
  Report Type: Spontaneous
  Country: IT (occurrence: IT)
  Receive Date: 20181022
  Receipt Date: 20181022
  Transmission Date: 20190205
  Serious: Yes (Other)
  Sender: FDA-Public Use
  Company Number: IT-PFIZER INC-2018424972

PATIENT
  Age: 54 Year
  Sex: Female

DRUGS (11)
  1. TRIATEC [RAMIPRIL] [Concomitant]
  2. REACTIFARGAN [Concomitant]
  3. EUTIROX [Concomitant]
     Active Substance: LEVOTHYROXINE SODIUM
  4. TRIMETON [CHLORPHENAMINE MALEATE] [Concomitant]
  5. IBRANCE [Suspect]
     Active Substance: PALBOCICLIB
     Indication: BREAST CANCER
     Dosage: 125 MG, 1X/DAY
     Route: 048
     Dates: start: 20180418, end: 20180705
  6. CIPROFLOXACIN. [Concomitant]
     Active Substance: CIPROFLOXACIN
  7. DELTACORTENE [Concomitant]
     Active Substance: PREDNISONE
  8. FASLODEX [Concomitant]
     Active Substance: FULVESTRANT
     Dosage: UNK
     Dates: start: 20180418, end: 20180614
  9. LANSOPRAZOLE. [Concomitant]
     Active Substance: LANSOPRAZOLE
  10. TACHIDOL [Concomitant]
     Active Substance: ACETAMINOPHEN\CODEINE PHOSPHATE
  11. DIBASE [Concomitant]
     Active Substance: CHOLECALCIFEROL

REACTIONS (7)
  - Neutropenia [Unknown]
  - Pyrexia [Unknown]
  - Thrombocytopenia [Unknown]
  - Anaemia [Unknown]
  - Erythema [Unknown]
  - Hypertransaminasaemia [Unknown]
  - Blister [Unknown]

NARRATIVE: CASE EVENT DATE: 20180502
